FAERS Safety Report 7490205-8 (Version None)
Quarter: 2011Q2

REPORT INFORMATION
  Report Type: 
  Country: None (occurrence: None)
  Receive Date: 20110519
  Receipt Date: 20110503
  Transmission Date: 20111010
  Serious: No
  Sender: FDA-Public Use
  Company Number: US-B.I. PHARMACEUTICALS,INC./RIDGEFIELD-2011-BP-12359BP

PATIENT
  Sex: Female

DRUGS (4)
  1. PROCARDIA [Concomitant]
     Indication: HYPERTENSION
     Route: 048
  2. XANAX [Concomitant]
     Indication: ANXIETY
     Route: 048
  3. CATAPRES [Suspect]
     Indication: HYPERTENSION
     Dosage: 0.1 MG
     Route: 048
     Dates: start: 20110429
  4. ATENOLOL [Concomitant]
     Indication: HYPERTENSION
     Route: 048

REACTIONS (5)
  - MICTURITION FREQUENCY DECREASED [None]
  - DRY MOUTH [None]
  - HEADACHE [None]
  - HYPERSOMNIA [None]
  - HEART RATE DECREASED [None]
